FAERS Safety Report 20939811 (Version 2)
Quarter: 2022Q2

REPORT INFORMATION
  Report Type: Spontaneous
  Country: CN (occurrence: CN)
  Receive Date: 20220609
  Receipt Date: 20220617
  Transmission Date: 20220721
  Serious: Yes (Hospitalization)
  Sender: FDA-Public Use
  Company Number: CN-Merck Healthcare KGaA-9327311

PATIENT
  Age: 67 Year
  Sex: Female

DRUGS (1)
  1. EUTHYROX [Suspect]
     Active Substance: LEVOTHYROXINE SODIUM
     Indication: Hypothyroidism
     Route: 048
     Dates: start: 202205

REACTIONS (6)
  - Depressed level of consciousness [Recovering/Resolving]
  - Bradykinesia [Recovering/Resolving]
  - Hyponatraemia [Recovering/Resolving]
  - Protein deficiency [Recovering/Resolving]
  - Confusional state [Recovering/Resolving]
  - Accidental overdose [Unknown]

NARRATIVE: CASE EVENT DATE: 20220501
